FAERS Safety Report 14710846 (Version 2)
Quarter: 2019Q1

REPORT INFORMATION
  Report Type: Spontaneous
  Country: US (occurrence: US)
  Receive Date: 20180403
  Receipt Date: 20190218
  Transmission Date: 20190417
  Serious: Yes (Other)
  Sender: FDA-Public Use
  Company Number: US-ASTRAZENECA-2018SE39907

PATIENT
  Sex: Male
  Weight: 127.9 kg

DRUGS (35)
  1. METOPROLOL SUCCINATE. [Concomitant]
     Active Substance: METOPROLOL SUCCINATE
  2. HYDROCHLOROTHIAZIDE. [Concomitant]
     Active Substance: HYDROCHLOROTHIAZIDE
  3. DULOXETINE HYDROCHLORIDE. [Concomitant]
     Active Substance: DULOXETINE HYDROCHLORIDE
  4. HYDROCODONE-ACETAMINOPHEN [Concomitant]
     Active Substance: ACETAMINOPHEN\HYDROCODONE
  5. LYRICA [Concomitant]
     Active Substance: PREGABALIN
  6. AMITRIPTYLINE [Concomitant]
     Active Substance: AMITRIPTYLINE
  7. NEXIUM [Suspect]
     Active Substance: ESOMEPRAZOLE MAGNESIUM
     Route: 048
     Dates: start: 2006, end: 2016
  8. OXYCODONE-ACETAMINOPHEN [Concomitant]
     Active Substance: ACETAMINOPHEN\OXYCODONE HYDROCHLORIDE
  9. PSEUDOVENT [Concomitant]
  10. XARELTO [Concomitant]
     Active Substance: RIVAROXABAN
  11. ACETAMINOPHEN. [Concomitant]
     Active Substance: ACETAMINOPHEN
  12. OMEPRAZOLE. [Concomitant]
     Active Substance: OMEPRAZOLE
  13. NORCO [Concomitant]
     Active Substance: ACETAMINOPHEN\HYDROCODONE BITARTRATE
  14. CIPROFLOXACIN HCL [Concomitant]
     Active Substance: CIPROFLOXACIN HYDROCHLORIDE
  15. GUAIFENEX [Concomitant]
     Active Substance: GUAIFENESIN\PHENYLEPHRINE\PHENYLPROPANOLAMINE
  16. MULTAQ [Concomitant]
     Active Substance: DRONEDARONE
  17. ASPIRIN. [Concomitant]
     Active Substance: ASPIRIN
  18. AMLODIPINE [Concomitant]
     Active Substance: AMLODIPINE BESYLATE
  19. COLCHICINE. [Concomitant]
     Active Substance: COLCHICINE
  20. CLONIDINE HYDROCHLORIDE. [Concomitant]
     Active Substance: CLONIDINE HYDROCHLORIDE
  21. OXYBUTYNIN. [Concomitant]
     Active Substance: OXYBUTYNIN CHLORIDE
  22. LOSARTAN. [Concomitant]
     Active Substance: LOSARTAN
  23. ALLOPURINOL. [Concomitant]
     Active Substance: ALLOPURINOL
  24. CIALIS [Concomitant]
     Active Substance: TADALAFIL
  25. AMBIEN [Concomitant]
     Active Substance: ZOLPIDEM TARTRATE
  26. SKELAXIN [Concomitant]
     Active Substance: METAXALONE
  27. INDOMETHACIN. [Concomitant]
     Active Substance: INDOMETHACIN
  28. CAPTOPRIL. [Concomitant]
     Active Substance: CAPTOPRIL
  29. PANTOPRAZOLE SODIUM. [Concomitant]
     Active Substance: PANTOPRAZOLE SODIUM
  30. BIOTIN [Concomitant]
     Active Substance: BIOTIN
  31. BENICAR [Concomitant]
     Active Substance: OLMESARTAN MEDOXOMIL
  32. PREDNISONE. [Concomitant]
     Active Substance: PREDNISONE
  33. METOPROLOL TARTRATE. [Concomitant]
     Active Substance: METOPROLOL TARTRATE
  34. PROMETHAZINE HCL [Concomitant]
     Active Substance: PROMETHAZINE HYDROCHLORIDE
  35. AMOXICILLIN. [Concomitant]
     Active Substance: AMOXICILLIN

REACTIONS (2)
  - Chronic kidney disease [Unknown]
  - Acute kidney injury [Unknown]
